FAERS Safety Report 4909310-2 (Version None)
Quarter: 2006Q1

REPORT INFORMATION
  Report Type: 
  Country: None (occurrence: None)
  Receive Date: 20060210
  Receipt Date: 20060210
  Transmission Date: 20060701
  Serious: Yes (Hospitalization)
  Sender: FDA-Public Use
  Company Number: None

PATIENT
  Sex: Male
  Weight: 88.6 kg

DRUGS (2)
  1. LITHIUM CARBONATE [Suspect]
     Indication: AFFECTIVE DISORDER
     Dosage: 600MG BID PO
     Route: 048
     Dates: start: 20010425, end: 20060209
  2. LISINOPRIL [Suspect]
     Indication: HYPERTENSION
     Dosage: 2.5 MG DAILY PO
     Route: 048
     Dates: start: 20051117, end: 20051213

REACTIONS (5)
  - ASTHENIA [None]
  - DRUG LEVEL ABOVE THERAPEUTIC [None]
  - HYPOAESTHESIA [None]
  - MYOCLONUS [None]
  - SOMNOLENCE [None]
